FAERS Safety Report 5257290-5 (Version None)
Quarter: 2007Q1

REPORT INFORMATION
  Report Type: 
  Country: None (occurrence: None)
  Receive Date: 20061220
  Receipt Date: 20061002
  Transmission Date: 20070707
  Serious: No
  Sender: FDA-Public Use
  Company Number: 2006RL000353

PATIENT
  Age: 57 Year
  Sex: Female

DRUGS (5)
  1. OMACOR [Suspect]
     Indication: DRUG USE FOR UNKNOWN INDICATION
     Dosage: 3 GM; QD; PO
     Route: 048
     Dates: start: 20060901
  2. CELEBREX [Concomitant]
  3. SYNTHROID [Concomitant]
  4. ACTONEL [Concomitant]
  5. ENBREL [Concomitant]

REACTIONS (2)
  - ERUCTATION [None]
  - FEELING HOT [None]
